FAERS Safety Report 8542914-7 (Version None)
Quarter: 2012Q3

REPORT INFORMATION
  Report Type: 
  Country: None (occurrence: None)
  Receive Date: 20120727
  Receipt Date: 20120723
  Transmission Date: 20120928
  Serious: Yes (Hospitalization)
  Sender: FDA-Public Use
  Company Number: AU-009507513-1207AUS000327

PATIENT

DRUGS (5)
  1. RISPERDAL [Concomitant]
  2. LITHIUM CARBONATE [Concomitant]
  3. SEROQUEL [Concomitant]
  4. VALPROATE SODIUM [Concomitant]
  5. SAPHRIS [Suspect]

REACTIONS (1)
  - MANIA [None]
